FAERS Safety Report 7518983-X (Version None)
Quarter: 2011Q2

REPORT INFORMATION
  Report Type: 
  Country: None (occurrence: None)
  Receive Date: 20110602
  Receipt Date: 20110523
  Transmission Date: 20111010
  Serious: Yes (Other)
  Sender: FDA-Public Use
  Company Number: US-GENENTECH-319282

PATIENT
  Sex: Male

DRUGS (1)
  1. NUTROPIN AQ [Suspect]
     Indication: HYPOPITUITARISM
     Dosage: 0.02 ML, QD
     Route: 058

REACTIONS (1)
  - CONVULSION [None]
